FAERS Safety Report 16983197 (Version 1)
Quarter: 2019Q4

REPORT INFORMATION
  Report Type: Spontaneous
  Country: US (occurrence: US)
  Receive Date: 20191101
  Receipt Date: 20191101
  Transmission Date: 20200122
  Serious: No
  Sender: FDA-Public Use
  Company Number: US-ASTRAZENECA-2019SF43232

PATIENT
  Sex: Female

DRUGS (3)
  1. LEVEMIR [Concomitant]
     Active Substance: INSULIN DETEMIR
  2. METFORMIN [Concomitant]
     Active Substance: METFORMIN HYDROCHLORIDE
  3. BYDUREON [Suspect]
     Active Substance: EXENATIDE
     Indication: DIABETES MELLITUS
     Dosage: 2.0MG UNKNOWN
     Route: 065
     Dates: start: 2019

REACTIONS (11)
  - Neuropathy peripheral [Unknown]
  - Product packaging quantity issue [Unknown]
  - Injection site bruising [Unknown]
  - Thyroid disorder [Unknown]
  - Fibromyalgia [Unknown]
  - Injection site haemorrhage [Unknown]
  - Product dose omission [Unknown]
  - Weight decreased [Unknown]
  - Wrong technique in device usage process [Unknown]
  - Increased tendency to bruise [Unknown]
  - Hypophagia [Unknown]
